FAERS Safety Report 21041093 (Version 1)
Quarter: 2022Q3

REPORT INFORMATION
  Report Type: Spontaneous
  Country: US (occurrence: US)
  Receive Date: 20220705
  Receipt Date: 20220705
  Transmission Date: 20221027
  Serious: Yes (Hospitalization, Other)
  Sender: FDA-Public Use
  Company Number: US-ALVOGEN-2022-ALVOGEN-120581

PATIENT
  Age: 80 Year
  Sex: Female

DRUGS (1)
  1. LEVOTHYROXINE [Suspect]
     Active Substance: LEVOTHYROXINE
     Indication: Hypothyroidism

REACTIONS (4)
  - Cardiac failure [Recovered/Resolved]
  - Drug ineffective [Recovered/Resolved]
  - Tri-iodothyronine uptake abnormal [Recovered/Resolved]
  - Thyroxine free decreased [Recovered/Resolved]
